FAERS Safety Report 14366540 (Version 1)
Quarter: 2018Q1

REPORT INFORMATION
  Report Type: Report from Study
  Country: IN (occurrence: IN)
  Receive Date: 20180109
  Receipt Date: 20180109
  Transmission Date: 20180509
  Serious: Yes (Other)
  Sender: FDA-Public Use
  Company Number: PHHY2017IN135703

PATIENT
  Age: 74 Year
  Sex: Female

DRUGS (2)
  1. AFINITOR [Suspect]
     Active Substance: EVEROLIMUS
     Indication: BREAST CANCER
     Dosage: 10 MG, QD
     Route: 048
     Dates: start: 20170330, end: 20170905
  2. AFINITOR [Suspect]
     Active Substance: EVEROLIMUS
     Dosage: 5 MG, QD
     Route: 048
     Dates: start: 20170906, end: 20171114

REACTIONS (5)
  - Decreased appetite [Recovered/Resolved]
  - Blood creatinine increased [Recovered/Resolved]
  - Haemoglobin decreased [Recovered/Resolved]
  - Nephritis [Unknown]
  - Asthenia [Recovered/Resolved]

NARRATIVE: CASE EVENT DATE: 20170810
